FAERS Safety Report 20511063 (Version 2)
Quarter: 2025Q4

REPORT INFORMATION
  Report Type: Spontaneous
  Country: JP (occurrence: JP)
  Receive Date: 20220224
  Receipt Date: 20251020
  Transmission Date: 20260118
  Serious: Yes (Other)
  Sender: SANOFI AVENTIS
  Company Number: JP-SA-2022SA033761

PATIENT
  Age: 37 Year
  Sex: Male

DRUGS (1)
  1. DUPIXENT [Suspect]
     Active Substance: DUPILUMAB
     Indication: Dermatitis atopic
     Dosage: 2 SYRINGES FOR THE INITIAL DOSE, QOW
     Route: 058
     Dates: start: 20220201, end: 202202

REACTIONS (14)
  - Angina pectoris [Unknown]
  - Feeling cold [Recovering/Resolving]
  - Bladder pain [Recovered/Resolved]
  - Myalgia [Recovered/Resolved]
  - Dizziness [Recovered/Resolved]
  - Blood pressure decreased [Unknown]
  - Body temperature decreased [Unknown]
  - Movement disorder [Recovered/Resolved]
  - Snoring [Unknown]
  - Chest discomfort [Unknown]
  - Palpitations [Unknown]
  - Pruritus [Unknown]
  - Arthralgia [Recovered/Resolved]
  - Gait disturbance [Recovered/Resolved]

NARRATIVE: CASE EVENT DATE: 20220201
